FAERS Safety Report 4667514-0 (Version None)
Quarter: 2005Q2

REPORT INFORMATION
  Report Type: 
  Country: None (occurrence: None)
  Receive Date: 20050520
  Receipt Date: 20041115
  Transmission Date: 20051028
  Serious: Yes (Other)
  Sender: FDA-Public Use
  Company Number: PHEH2004US12364

PATIENT
  Sex: Female

DRUGS (7)
  1. TAXOTERE [Concomitant]
     Indication: BREAST CANCER
     Dosage: 148 MG UNK
  2. TAMOXIFEN [Concomitant]
     Indication: BREAST CANCER
     Dosage: 20MG QD
  3. HERCEPTIN ^HOFFMANN-LA ROCHE^ [Concomitant]
     Indication: BREAST CANCER
     Dosage: 220MG QWK
  4. FEMARA [Concomitant]
     Indication: BREAST CANCER
     Dosage: 2.5MG QWK
  5. AROMASIN [Concomitant]
  6. XELODA [Concomitant]
     Dosage: 3920MG UNK
  7. ZOMETA [Suspect]
     Indication: METASTASES TO BONE
     Dosage: 4 MG, QMO
     Route: 042
     Dates: start: 20020529, end: 20040804

REACTIONS (6)
  - BONE DEBRIDEMENT [None]
  - BONE DISORDER [None]
  - BONE FISTULA [None]
  - OSTEOMYELITIS [None]
  - OSTEONECROSIS [None]
  - PRIMARY SEQUESTRUM [None]
